FAERS Safety Report 10075802 (Version 1)
Quarter: 2014Q2

REPORT INFORMATION
  Report Type: Spontaneous
  Country: US (occurrence: None)
  Receive Date: 20140411
  Receipt Date: 20140411
  Transmission Date: 20141212
  Serious: Yes (Hospitalization)
  Sender: FDA-Public Use
  Company Number: None

PATIENT
  Age: 42 Year
  Sex: Female
  Weight: 74.1 kg

DRUGS (18)
  1. VARENICLINE [Suspect]
     Indication: SMOKING CESSATION THERAPY
     Dosage: 0.5 MG QD DAYS 1-3 THEN BID DAYS 4-7?SEE ^DOSE OR AMOUNT^
     Route: 048
     Dates: start: 20140211, end: 20140218
  2. OMEPRAZOLE [Concomitant]
  3. ACETAZOLAMIDE [Concomitant]
  4. DEXAMETHASONE [Concomitant]
  5. SCOPOLAMINE PATCH [Concomitant]
  6. DICLOFENAC SODIUM GEL [Concomitant]
  7. HYDROMORPHONE [Concomitant]
  8. CHOLECAIFEROL [Concomitant]
  9. PYRIDOXINE HCL [Concomitant]
  10. ABSORBIC ACID [Concomitant]
  11. NORCO [Concomitant]
  12. VENLAFAXINE [Concomitant]
  13. ODANSETRON [Concomitant]
  14. LORAZEPAM [Concomitant]
  15. ALBUTEROL [Concomitant]
  16. SERTRALINE [Concomitant]
  17. LIDOCAINE-PRILOCAINE CREAM [Concomitant]
  18. CALCIUM CARB-CHOLECALCIFEROL [Concomitant]

REACTIONS (2)
  - Headache [None]
  - Condition aggravated [None]
